FAERS Safety Report 8566975 (Version 2)
Quarter: 2014Q1

REPORT INFORMATION
  Report Type: Spontaneous
  Country: JP (occurrence: JP)
  Receive Date: 20120517
  Receipt Date: 20140307
  Transmission Date: 20141002
  Serious: Yes (Other)
  Sender: FDA-Public Use
  Company Number: PHHY2012JP040804

PATIENT
  Sex: 0

DRUGS (6)
  1. VANCOMYCIN [Suspect]
     Dosage: (MATERNAL DOSE: 500 MG )
     Route: 064
  2. PREDNISOLONE [Suspect]
     Dosage: (MATERNAL DOSE: 20 MG)
     Route: 064
  3. PREDNISOLONE [Suspect]
     Dosage: (MATERNAL DOSE: 40 MG)
     Route: 064
  4. MESALAMINE [Suspect]
     Dosage: (MATERNAL DOSE: 2250 MG)
     Route: 064
  5. MESALAMINE [Suspect]
     Dosage: (MATERNAL DOSE: 4000 MG)
     Route: 064
  6. PREDNISOLONE [Suspect]
     Dosage: (MATERNAL DOSE: 80 MG)
     Route: 064

REACTIONS (3)
  - Premature baby [Unknown]
  - Low birth weight baby [Unknown]
  - Foetal exposure during pregnancy [Unknown]
